FAERS Safety Report 6801632-3 (Version None)
Quarter: 2010Q2

REPORT INFORMATION
  Report Type: 
  Country: None (occurrence: None)
  Receive Date: 20100629
  Receipt Date: 20100618
  Transmission Date: 20101027
  Serious: Yes (Hospitalization, Other)
  Sender: FDA-Public Use
  Company Number: CA-MERCK-1006USA03107

PATIENT
  Age: 60 Year
  Sex: Female

DRUGS (33)
  1. FOSAMAX [Suspect]
     Route: 048
  2. FOSAMAX [Suspect]
     Route: 048
  3. FOSAMAX [Suspect]
     Route: 048
  4. FOSAMAX [Suspect]
     Route: 048
  5. ACTONEL [Suspect]
     Route: 048
  6. ACTONEL [Suspect]
     Route: 048
  7. DIDROCAL [Suspect]
     Route: 048
  8. DIDRONEL [Suspect]
     Route: 048
  9. DIDRONEL [Suspect]
     Route: 048
  10. CALCITRIOL [Concomitant]
     Route: 065
  11. CALCIUM (UNSPECIFIED) AND VITAMIN D (UNSPECIFIED) [Concomitant]
     Route: 065
  12. CALCIUM CARBONATE [Concomitant]
     Route: 065
  13. CELEBREX [Concomitant]
     Route: 065
  14. CENTRUM [Concomitant]
     Route: 065
  15. COSOPT [Concomitant]
     Route: 065
  16. DURAGESIC-100 [Concomitant]
     Route: 065
  17. ESTROGENS (UNSPECIFIED) [Concomitant]
     Route: 065
  18. EVISTA [Concomitant]
     Route: 065
  19. IMOVANE [Concomitant]
     Route: 065
  20. ISOPTO CARPINE [Concomitant]
     Route: 065
  21. LIPITOR [Concomitant]
     Route: 065
  22. LORAZEPAM [Concomitant]
     Route: 065
  23. NORVASC [Concomitant]
     Route: 065
  24. PERCOCET [Concomitant]
     Route: 065
  25. PLANTAGO SEED [Concomitant]
     Route: 065
  26. PROVERA [Concomitant]
     Route: 065
  27. ROCALTROL [Concomitant]
     Route: 065
  28. VIOXX [Concomitant]
     Route: 048
  29. VITAMIN D (UNSPECIFIED) [Concomitant]
     Route: 065
  30. VITAMIN E [Concomitant]
     Route: 065
  31. ZANTAC [Concomitant]
     Route: 065
  32. ZOLOFT [Concomitant]
     Route: 065
  33. LASIX [Concomitant]
     Route: 065

REACTIONS (14)
  - BONE LESION [None]
  - GINGIVAL BLEEDING [None]
  - GINGIVAL HYPERTROPHY [None]
  - HYPERHIDROSIS [None]
  - LOCAL SWELLING [None]
  - LOOSE TOOTH [None]
  - NECROTISING ULCERATIVE GINGIVOSTOMATITIS [None]
  - OSTEOMYELITIS [None]
  - OSTEONECROSIS [None]
  - PURULENT DISCHARGE [None]
  - RESORPTION BONE INCREASED [None]
  - TOOTH ABSCESS [None]
  - TOOTH EXTRACTION [None]
  - TOOTHACHE [None]
